FAERS Safety Report 11117361 (Version 1)
Quarter: 2015Q2

REPORT INFORMATION
  Report Type: Report from Study
  Country: BR (occurrence: BR)
  Receive Date: 20150516
  Receipt Date: 20150516
  Transmission Date: 20150821
  Serious: Yes (Other)
  Sender: FDA-Public Use
  Company Number: ALCN2015BR003222

PATIENT
  Sex: Female
  Weight: 80 kg

DRUGS (1)
  1. TRAVATAN [Suspect]
     Active Substance: TRAVOPROST
     Indication: GLAUCOMA
     Dosage: 1 GTT, QD
     Route: 047
     Dates: start: 1995

REACTIONS (5)
  - Fall [Recovered/Resolved with Sequelae]
  - Femur fracture [Recovered/Resolved with Sequelae]
  - Abasia [Not Recovered/Not Resolved]
  - Pelvic fracture [Recovered/Resolved with Sequelae]
  - Bedridden [Recovered/Resolved with Sequelae]

NARRATIVE: CASE EVENT DATE: 2005
